FAERS Safety Report 9392830 (Version 2)
Quarter: 2013Q3

REPORT INFORMATION
  Report Type: Spontaneous
  Country: KR (occurrence: KR)
  Receive Date: 20130710
  Receipt Date: 20130725
  Transmission Date: 20140515
  Serious: Yes (Hospitalization)
  Sender: FDA-Public Use
  Company Number: PHHY2013KR071228

PATIENT
  Age: 60 Year
  Sex: Male

DRUGS (4)
  1. CICLOSPORIN [Suspect]
     Dosage: 50 MG, UNK
  2. DEXAMETHASONE [Concomitant]
     Dosage: 5 MG, FOUR TIMES EVERY THREE DAYS
     Route: 030
  3. PREDNISOLONE [Concomitant]
     Dosage: 20 MG, UNK
     Route: 048
  4. ANTIHISTAMINES [Concomitant]

REACTIONS (6)
  - Cerebral venous thrombosis [Recovered/Resolved]
  - Headache [Recovering/Resolving]
  - Dizziness [Recovering/Resolving]
  - Convulsion [Recovering/Resolving]
  - Infarction [Recovering/Resolving]
  - Hemiplegia [Recovering/Resolving]
